FAERS Safety Report 11853433 (Version 2)
Quarter: 2016Q1

REPORT INFORMATION
  Report Type: Spontaneous
  Country: GB (occurrence: GB)
  Receive Date: 20151218
  Receipt Date: 20160202
  Transmission Date: 20160526
  Serious: Yes (Death)
  Sender: FDA-Public Use
  Company Number: GB-ASTRAZENECA-2015SF11261

PATIENT
  Age: 44 Year
  Sex: Male
  Weight: 109 kg

DRUGS (10)
  1. ZOPICLONE [Suspect]
     Active Substance: ZOPICLONE
     Route: 048
     Dates: end: 20150609
  2. METFORMIN [Suspect]
     Active Substance: METFORMIN HYDROCHLORIDE
     Dosage: NON-AZ PRODUCT, 2 G, EVERY DAY, WITH EVENING MEAL
     Route: 048
     Dates: end: 20150609
  3. RISPERIDONE. [Suspect]
     Active Substance: RISPERIDONE
     Route: 048
     Dates: end: 20150609
  4. NUROFEN PLUS [Suspect]
     Active Substance: CODEINE PHOSPHATE\IBUPROFEN
     Dosage: 245
     Route: 048
     Dates: end: 20150609
  5. MIRTAZAPINE. [Suspect]
     Active Substance: MIRTAZAPINE
     Route: 048
     Dates: end: 20150609
  6. GLIMEPIRIDE. [Suspect]
     Active Substance: GLIMEPIRIDE
     Route: 048
     Dates: end: 20150609
  7. SITAGLIPTIN [Suspect]
     Active Substance: SITAGLIPTIN
     Route: 048
     Dates: end: 20150606
  8. QUETIAPINE [Suspect]
     Active Substance: QUETIAPINE
     Route: 048
     Dates: end: 20150609
  9. SITAGLIPTIN [Suspect]
     Active Substance: SITAGLIPTIN
     Route: 048
     Dates: end: 20150609
  10. VENLAFAXINE [Suspect]
     Active Substance: VENLAFAXINE HYDROCHLORIDE
     Route: 048
     Dates: end: 20150609

REACTIONS (2)
  - Intentional overdose [Fatal]
  - Metabolic acidosis [Fatal]

NARRATIVE: CASE EVENT DATE: 20150611
